FAERS Safety Report 18488164 (Version 1)
Quarter: 2020Q4

REPORT INFORMATION
  Report Type: Spontaneous
  Country: US (occurrence: US)
  Receive Date: 20201110
  Receipt Date: 20201110
  Transmission Date: 20210114
  Serious: Yes (Other)
  Sender: FDA-Public Use
  Company Number: US-PURDUE-USA-2020-0174792

PATIENT
  Sex: Male

DRUGS (9)
  1. OXYCONTIN [Suspect]
     Active Substance: OXYCODONE HYDROCHLORIDE
     Indication: ARTHRITIS
  2. OPANA [Suspect]
     Active Substance: OXYMORPHONE HYDROCHLORIDE
     Indication: ARTHRITIS
  3. OPANA [Suspect]
     Active Substance: OXYMORPHONE HYDROCHLORIDE
     Indication: NECK PAIN
     Dosage: UNK
     Route: 065
  4. OPANA [Suspect]
     Active Substance: OXYMORPHONE HYDROCHLORIDE
     Indication: BACK PAIN
  5. OXYCONTIN [Suspect]
     Active Substance: OXYCODONE HYDROCHLORIDE
     Indication: BACK PAIN
  6. OXYCODONE HCL CR TABLETS (SIMILAR TO NDA 22-272) [Suspect]
     Active Substance: OXYCODONE HYDROCHLORIDE
     Indication: PRODUCT USED FOR UNKNOWN INDICATION
     Dosage: UNK
     Route: 048
  7. OXYCODONE HCL TABLETS (RHODES 91-490) [Suspect]
     Active Substance: OXYCODONE HYDROCHLORIDE
     Dosage: UNK
     Route: 065
  8. OXYCONTIN [Suspect]
     Active Substance: OXYCODONE HYDROCHLORIDE
     Indication: NECK PAIN
     Dosage: UNK
     Route: 048
  9. OXYCODONE/ ACETAMINOPHEN TABLETS [Suspect]
     Active Substance: ACETAMINOPHEN\OXYCODONE HYDROCHLORIDE
     Indication: PRODUCT USED FOR UNKNOWN INDICATION
     Dosage: UNK
     Route: 048

REACTIONS (4)
  - Suicide attempt [Unknown]
  - Depression [Unknown]
  - Drug dependence [Unknown]
  - Overdose [Unknown]
